FAERS Safety Report 5491358-3 (Version None)
Quarter: 2007Q4

REPORT INFORMATION
  Report Type: 
  Country: None (occurrence: None)
  Receive Date: 20071017
  Receipt Date: 20071002
  Transmission Date: 20080405
  Serious: Yes (Other)
  Sender: FDA-Public Use
  Company Number: 2007S1009759

PATIENT
  Age: 69 Year
  Sex: Male

DRUGS (8)
  1. FINASTERIDE [Suspect]
     Indication: HYPERTENSION
     Dosage: 5 MG;
     Dates: start: 20060101
  2. BUPRENORPHINE HCL [Suspect]
     Indication: PAIN
     Dates: start: 20070718, end: 20070725
  3. AMLODIPINE [Concomitant]
  4. ASPIRIN [Concomitant]
  5. DOXAZOSIN MESYLATE [Concomitant]
  6. FUROSEMIDE [Concomitant]
  7. RAMIPRIL [Concomitant]
  8. SPIRONOLACTONE [Concomitant]

REACTIONS (2)
  - DRUG INTERACTION [None]
  - POLLAKIURIA [None]
